FAERS Safety Report 12915804 (Version 1)
Quarter: 2016Q4

REPORT INFORMATION
  Report Type: Report from Study
  Country: FR (occurrence: FR)
  Receive Date: 20161107
  Receipt Date: 20161107
  Transmission Date: 20170207
  Serious: Yes (Other)
  Sender: FDA-Public Use
  Company Number: FR-ROCHE-1849227

PATIENT
  Sex: Female

DRUGS (2)
  1. TRASTUZUMAB [Suspect]
     Active Substance: TRASTUZUMAB
     Indication: HER-2 POSITIVE BREAST CANCER
     Route: 042
  2. DOCETAXEL. [Suspect]
     Active Substance: DOCETAXEL
     Indication: HER-2 POSITIVE BREAST CANCER
     Route: 065

REACTIONS (11)
  - Skin toxicity [Unknown]
  - Alopecia [Unknown]
  - Neutropenia [Unknown]
  - Gamma-glutamyltransferase increased [Unknown]
  - White blood cell disorder [Unknown]
  - Asthenia [Unknown]
  - Mucosal inflammation [Unknown]
  - Ejection fraction decreased [Recovered/Resolved]
  - Infection [Unknown]
  - Febrile neutropenia [Unknown]
  - Aspartate aminotransferase increased [Unknown]
